FAERS Safety Report 7338026-0 (Version None)
Quarter: 2011Q1

REPORT INFORMATION
  Report Type: 
  Country: None (occurrence: None)
  Receive Date: 20110308
  Receipt Date: 20110222
  Transmission Date: 20110831
  Serious: Yes (Hospitalization, Other)
  Sender: FDA-Public Use
  Company Number: PHHY2011JP15616

PATIENT
  Sex: Female
  Weight: 51 kg

DRUGS (5)
  1. AMLODIPINE [Concomitant]
     Dosage: 5 MG, UNK
     Dates: start: 20060101
  2. ASPIRIN [Concomitant]
     Dosage: 100 MG, UNK
     Route: 048
     Dates: start: 20091015
  3. DIOVAN [Suspect]
     Dosage: 160 MG, QD
     Route: 048
     Dates: start: 20090226
  4. FLUITRAN [Concomitant]
     Dosage: 1 MG, UNK
     Route: 048
     Dates: start: 20090423, end: 20090930
  5. DIOVAN [Suspect]
     Indication: HYPERTENSION
     Dosage: 80 MG, QD
     Route: 048
     Dates: start: 20081127, end: 20090225

REACTIONS (4)
  - LACUNAR INFARCTION [None]
  - DIZZINESS [None]
  - CEREBRAL INFARCTION [None]
  - BLOOD PRESSURE SYSTOLIC INCREASED [None]
